FAERS Safety Report 5643747-1 (Version None)
Quarter: 2008Q1

REPORT INFORMATION
  Report Type: 
  Country: None (occurrence: None)
  Receive Date: 20080228
  Receipt Date: 20080220
  Transmission Date: 20080703
  Serious: Yes (Hospitalization)
  Sender: FDA-Public Use
  Company Number: TW-ABBOTT-08P-153-0433061-00

PATIENT
  Sex: Female
  Weight: 57 kg

DRUGS (2)
  1. HUMIRA [Suspect]
     Indication: RHEUMATOID ARTHRITIS
     Route: 058
     Dates: start: 20070803, end: 20071201
  2. METHOTREXATE [Interacting]
     Indication: RHEUMATOID ARTHRITIS

REACTIONS (2)
  - DRUG INTERACTION [None]
  - PNEUMONITIS [None]
